FAERS Safety Report 8988737 (Version 1)
Quarter: 2012Q4

REPORT INFORMATION
  Report Type: Spontaneous
  Country: US (occurrence: None)
  Receive Date: 20121224
  Receipt Date: 20121224
  Transmission Date: 20130627
  Serious: Yes (Other)
  Sender: FDA-Public Use
  Company Number: None

PATIENT
  Age: 15 Year
  Sex: Male

DRUGS (1)
  1. NORDIFLEX [Suspect]
     Route: 058
     Dates: start: 20121022, end: 20121214

REACTIONS (1)
  - Breast mass [None]
